FAERS Safety Report 14081951 (Version 1)
Quarter: 2017Q4

REPORT INFORMATION
  Report Type: Spontaneous
  Country: US (occurrence: US)
  Receive Date: 20171012
  Receipt Date: 20171012
  Transmission Date: 20180321
  Serious: No
  Sender: FDA-Public Use
  Company Number: US-MYLANLABS-2017M1048735

PATIENT
  Sex: Female

DRUGS (1)
  1. HALOPERIDOL DECANOATE INJECTION USP [Suspect]
     Active Substance: HALOPERIDOL DECANOATE
     Dosage: 100 MG, UNK
     Route: 030

REACTIONS (3)
  - Injection site erythema [Unknown]
  - Injection site nodule [Unknown]
  - Drug ineffective [Unknown]
